FAERS Safety Report 8321709-3 (Version None)
Quarter: 2012Q2

REPORT INFORMATION
  Report Type: 
  Country: None (occurrence: None)
  Receive Date: 20120430
  Receipt Date: 20120426
  Transmission Date: 20120825
  Serious: Yes (Other)
  Sender: FDA-Public Use
  Company Number: US-PFIZER INC-2012104290

PATIENT
  Sex: Female
  Weight: 89.796 kg

DRUGS (7)
  1. CELEBREX [Suspect]
     Indication: ARTHRITIS
     Dosage: 200 MG, DAILY
  2. TOPROL-XL [Suspect]
     Indication: HYPERTENSION
     Dosage: 200 MG, DAILY
     Dates: start: 19950101
  3. PRILOSEC [Concomitant]
     Indication: ULCER HAEMORRHAGE
     Dosage: UNK, DAILY
  4. FENOFIBRATE [Concomitant]
     Indication: BLOOD CHOLESTEROL ABNORMAL
     Dosage: UNK
  5. HYDRALAZINE [Concomitant]
     Indication: HYPERTENSION
     Dosage: 25 MG, DAILY
  6. HYDROCHLOROTHIAZIDE [Concomitant]
     Indication: HYPERTENSION
     Dosage: 25 MG, DAILY
  7. LEXAPRO [Concomitant]
     Indication: DEPRESSION
     Dosage: 20 MG, UNK

REACTIONS (7)
  - NERVE INJURY [None]
  - PAIN [None]
  - LIMB INJURY [None]
  - INSOMNIA [None]
  - FALL [None]
  - INTERVERTEBRAL DISC DISORDER [None]
  - JOINT RANGE OF MOTION DECREASED [None]
